FAERS Safety Report 5633818-8 (Version None)
Quarter: 2008Q1

REPORT INFORMATION
  Report Type: 
  Country: None (occurrence: None)
  Receive Date: 20080131
  Receipt Date: 20071115
  Transmission Date: 20080703
  Serious: No
  Sender: FDA-Public Use
  Company Number: 163-21880-07111022

PATIENT
  Age: 53 Year
  Sex: Male

DRUGS (16)
  1. REVLIMID [Suspect]
     Indication: MULTIPLE MYELOMA
     Dosage: 12.5 MG, 1 IN 2 D, ORAL
     Route: 048
     Dates: start: 20070620, end: 20071115
  2. ERYTHROPOIETIN (ERYTHROPOIETIN) [Concomitant]
  3. MULTIVITAMIN [Concomitant]
  4. LACTULOSE [Concomitant]
  5. FLEET ENEMA (FLEET ENEMA) (ENEMA) [Concomitant]
  6. POTASSIUM (POTASSIUM) [Concomitant]
  7. GALANTAMINE (GALANTAMINE) [Concomitant]
  8. TRAZODONE HCL [Concomitant]
  9. SENNA (SENNA) [Concomitant]
  10. METOCLOPRAMIDE [Concomitant]
  11. DULCOLAX [Concomitant]
  12. ACETAMINOPHEN [Concomitant]
  13. PROMETHAZINE [Concomitant]
  14. OMEPRAZOLE [Concomitant]
  15. MORPHINE [Concomitant]
  16. DRONABINOL [Concomitant]

REACTIONS (1)
  - HYPOCALCAEMIA [None]
